FAERS Safety Report 6031022-5 (Version None)
Quarter: 2008Q4

REPORT INFORMATION
  Report Type: 
  Country: None (occurrence: None)
  Receive Date: 20081222
  Receipt Date: 20081006
  Transmission Date: 20090506
  Serious: No
  Sender: FDA-Public Use
  Company Number: ALL1-2008-02896

PATIENT
  Age: 5 Year
  Sex: Male
  Weight: 21.8 kg

DRUGS (1)
  1. VYVANSE [Suspect]
     Indication: ATTENTION DEFICIT/HYPERACTIVITY DISORDER
     Dosage: MG, 1X/DAY:QD, ORAL
     Route: 048
     Dates: start: 20070701, end: 20070801

REACTIONS (2)
  - ABNORMAL BEHAVIOUR [None]
  - OFF LABEL USE [None]
